FAERS Safety Report 11772873 (Version 1)
Quarter: 2015Q4

REPORT INFORMATION
  Report Type: Spontaneous
  Country: BR (occurrence: BR)
  Receive Date: 20151124
  Receipt Date: 20151124
  Transmission Date: 20160304
  Serious: Yes (Death)
  Sender: FDA-Public Use
  Company Number: BR-BAYER-2015-466142

PATIENT
  Age: 77 Year
  Sex: Male

DRUGS (2)
  1. CLOPIDOGREL [Suspect]
     Active Substance: CLOPIDOGREL BISULFATE
     Indication: ACUTE CORONARY SYNDROME
     Dosage: UNK
  2. ASPIRINA [Suspect]
     Active Substance: ASPIRIN
     Indication: ACUTE CORONARY SYNDROME
     Dosage: UNK

REACTIONS (1)
  - Death [Fatal]
